FAERS Safety Report 18161068 (Version 2)
Quarter: 2020Q3

REPORT INFORMATION
  Report Type: Spontaneous
  Country: US (occurrence: US)
  Receive Date: 20200818
  Receipt Date: 20200925
  Transmission Date: 20201103
  Serious: No
  Sender: FDA-Public Use
  Company Number: US-SA-2020SA216682

PATIENT

DRUGS (10)
  1. CETAPHIL [CETYL ALCOHOL;SODIUM LAURYL SULFATE] [Concomitant]
  2. ELIDEL [Concomitant]
     Active Substance: PIMECROLIMUS
  3. PAXIL [Concomitant]
     Active Substance: PAROXETINE HYDROCHLORIDE
     Dosage: UNK UNK, QD
  4. NASONEX [Concomitant]
     Active Substance: MOMETASONE FUROATE
     Dosage: SPRAY/PUMP
  5. CETAPHIL [CETYL ALCOHOL;SODIUM LAURYL SULFATE] [Concomitant]
     Dosage: CLEANSER
  6. DUPIXENT [Suspect]
     Active Substance: DUPILUMAB
     Indication: DERMATITIS ATOPIC
     Dosage: 300 MG, QOW
     Route: 058
     Dates: start: 201808
  7. DUPIXENT [Suspect]
     Active Substance: DUPILUMAB
     Indication: DERMATITIS
  8. AZELASTINE HCL [Concomitant]
     Active Substance: AZELASTINE HYDROCHLORIDE
     Dosage: SPRAY/PUMP
  9. DUPIXENT [Suspect]
     Active Substance: DUPILUMAB
     Indication: DERMATITIS ALLERGIC
  10. XYZAL [Concomitant]
     Active Substance: LEVOCETIRIZINE DIHYDROCHLORIDE

REACTIONS (5)
  - Skin fissures [Unknown]
  - Pruritus [Unknown]
  - Pruritus [Unknown]
  - Product dose omission issue [Unknown]
  - Dry skin [Unknown]

NARRATIVE: CASE EVENT DATE: 202008
